FAERS Safety Report 9844524 (Version 1)
Quarter: 2014Q1

REPORT INFORMATION
  Report Type: Spontaneous
  Country: US (occurrence: None)
  Receive Date: 20140123
  Receipt Date: 20140123
  Transmission Date: 20141002
  Serious: Yes (Disabling)
  Sender: FDA-Public Use
  Company Number: None

PATIENT
  Age: 29 Year
  Sex: Female
  Weight: 74.84 kg

DRUGS (1)
  1. AUGMENTIN [Suspect]
     Indication: SINUSITIS
     Dosage: 1 TABLET TWICE DAILY TAKEN BY MOUTH
     Route: 048
     Dates: start: 20131014, end: 20131023

REACTIONS (10)
  - Diarrhoea [None]
  - Abdominal pain [None]
  - Nausea [None]
  - Steatorrhoea [None]
  - Oesophagitis [None]
  - Gastritis [None]
  - Coeliac disease [None]
  - Fatigue [None]
  - Depression [None]
  - Paraesthesia [None]
